FAERS Safety Report 5177885-7 (Version None)
Quarter: 2006Q4

REPORT INFORMATION
  Report Type: 
  Country: None (occurrence: None)
  Receive Date: 20061218
  Receipt Date: 20060726
  Transmission Date: 20070319
  Serious: No
  Sender: FDA-Public Use
  Company Number: US-AMGEN-KDL188025

PATIENT
  Sex: Female

DRUGS (2)
  1. ENBREL [Suspect]
     Indication: RHEUMATOID ARTHRITIS
     Route: 058
     Dates: start: 19980101
  2. METHOTREXATE [Concomitant]

REACTIONS (5)
  - HAEMORRHAGE [None]
  - HEPATITIS C POSITIVE [None]
  - INCREASED TENDENCY TO BRUISE [None]
  - OSTEOPOROSIS [None]
  - SPINAL COLUMN STENOSIS [None]
